FAERS Safety Report 24388340 (Version 1)
Quarter: 2024Q4

REPORT INFORMATION
  Report Type: Spontaneous
  Country: FR (occurrence: FR)
  Receive Date: 20241002
  Receipt Date: 20241002
  Transmission Date: 20250115
  Serious: Yes (Other)
  Sender: GUERBET
  Company Number: FR-GUERBETG-FR-20240348

PATIENT

DRUGS (1)
  1. DOTAREM [Suspect]
     Active Substance: GADOTERATE MEGLUMINE
     Indication: Magnetic resonance imaging head

REACTIONS (2)
  - Rash papular [Unknown]
  - Papule [Unknown]

NARRATIVE: CASE EVENT DATE: 20240919
